FAERS Safety Report 7207889-1 (Version None)
Quarter: 2011Q1

REPORT INFORMATION
  Report Type: 
  Country: None (occurrence: None)
  Receive Date: 20110104
  Receipt Date: 20101221
  Transmission Date: 20110831
  Serious: Yes (Death, Hospitalization)
  Sender: FDA-Public Use
  Company Number: US-JNJFOC-20101208799

PATIENT

DRUGS (2)
  1. ACETAMINOPHEN [Suspect]
     Route: 064
  2. ACETAMINOPHEN [Suspect]
     Indication: DRUG EXPOSURE DURING PREGNANCY
     Route: 064

REACTIONS (2)
  - RENAL FAILURE NEONATAL [None]
  - POLYHYDRAMNIOS [None]
